FAERS Safety Report 8771028 (Version 1)
Quarter: 2012Q4

REPORT INFORMATION
  Report Type: 
  Country: US (occurrence: US)
  Receive Date: 20120906
  Receipt Date: 20120906
  Transmission Date: 20130627
  Serious: No
  Sender: FDA-Public Use
  Company Number: US-PFIZER INC-2012215869

PATIENT
  Age: 7 Month
  Sex: Female

DRUGS (1)
  1. INFANT ADVIL CONCENTRATED DROPS [Suspect]
     Dosage: UNK

REACTIONS (2)
  - Rash macular [Unknown]
  - Rash papular [Unknown]
